FAERS Safety Report 11201246 (Version 1)
Quarter: 2015Q2

REPORT INFORMATION
  Report Type: Spontaneous
  Country: IT (occurrence: IT)
  Receive Date: 20150619
  Receipt Date: 20150619
  Transmission Date: 20150821
  Serious: Yes (Hospitalization)
  Sender: FDA-Public Use
  Company Number: IT-ROCHE-1594320

PATIENT
  Age: 92 Year
  Sex: Male

DRUGS (3)
  1. AUGMENTIN [Suspect]
     Active Substance: AMOXICILLIN\CLAVULANATE POTASSIUM
     Indication: LOWER RESPIRATORY TRACT INFECTION
     Route: 048
     Dates: start: 20141027, end: 20141031
  2. ROCEFIN [Suspect]
     Active Substance: CEFTRIAXONE SODIUM
     Indication: LOWER RESPIRATORY TRACT INFECTION
     Dosage: 1 G/3.5 ML 1POWDER BOTTLE +1 X 3.5 ML SOLVENT VIAL
     Route: 030
     Dates: start: 20141027, end: 20141031
  3. COUMADIN [Suspect]
     Active Substance: WARFARIN SODIUM
     Indication: THROMBOSIS PROPHYLAXIS
     Dosage: 5 MG TABLETS 30 DIVISIBLE TABLETS
     Route: 048
     Dates: start: 20140101, end: 20141103

REACTIONS (4)
  - Pyrexia [Unknown]
  - Confusional state [Unknown]
  - Hallucination [Unknown]
  - International normalised ratio increased [Unknown]

NARRATIVE: CASE EVENT DATE: 20141103
